FAERS Safety Report 7290306-3 (Version None)
Quarter: 2011Q1

REPORT INFORMATION
  Report Type: 
  Country: None (occurrence: None)
  Receive Date: 20110208
  Receipt Date: 20110208
  Transmission Date: 20110831
  Serious: No
  Sender: FDA-Public Use
  Company Number: None

PATIENT
  Sex: Female

DRUGS (1)
  1. INFED [Suspect]
     Indication: IRON DEFICIENCY
     Dosage: 0.5CC - IVSS
     Route: 042
     Dates: start: 20110203

REACTIONS (2)
  - THROAT TIGHTNESS [None]
  - BACK PAIN [None]
